FAERS Safety Report 8341339-7 (Version None)
Quarter: 2012Q2

REPORT INFORMATION
  Report Type: 
  Country: None (occurrence: None)
  Receive Date: 20120507
  Receipt Date: 20120423
  Transmission Date: 20120825
  Serious: Yes (Death, Life-Threatening, Hospitalization, Other)
  Sender: FDA-Public Use
  Company Number: US-MYLANLABS-2009AC000491

PATIENT
  Age: 62 Year
  Sex: Female
  Weight: 53.52 kg

DRUGS (18)
  1. SERZONE [Concomitant]
  2. LEVOTHYROXINE SODIUM [Concomitant]
  3. LASIX [Concomitant]
  4. PHENERGAN [Concomitant]
     Route: 054
  5. PAXIL CR [Concomitant]
  6. COREG CR [Concomitant]
  7. PANCOF /00374301/ [Concomitant]
  8. PREMPRO [Concomitant]
     Dosage: 0.625/2.5MG
  9. DIGOXIN [Suspect]
     Indication: CARDIOMYOPATHY
     Route: 048
     Dates: start: 19740101, end: 20071001
  10. LISINOPRIL [Concomitant]
  11. ASPIRIN [Concomitant]
  12. RESCON /00014501/ [Concomitant]
  13. AMIODARONE HCL [Concomitant]
     Route: 042
  14. DIGOXIN [Suspect]
     Indication: CARDIAC FAILURE CONGESTIVE
     Route: 048
     Dates: start: 19740101, end: 20071001
  15. AMOXIL [Concomitant]
  16. ACTONEL [Concomitant]
  17. ENDAL [Concomitant]
  18. RISPERDAL [Concomitant]

REACTIONS (77)
  - CARDIAC ARREST [None]
  - RENAL FAILURE [None]
  - CONGESTIVE CARDIOMYOPATHY [None]
  - HYPOTENSION [None]
  - POSTURING [None]
  - CHEST X-RAY ABNORMAL [None]
  - CORNEAL REFLEX DECREASED [None]
  - ELECTROENCEPHALOGRAM ABNORMAL [None]
  - FLAT AFFECT [None]
  - HAEMORRHOIDS [None]
  - NAUSEA [None]
  - PUPILLARY REFLEX IMPAIRED [None]
  - REFLEXES ABNORMAL [None]
  - DEATH [None]
  - LOSS OF CONSCIOUSNESS [None]
  - PSYCHOTIC DISORDER [None]
  - DELUSION [None]
  - HYPOKINESIA [None]
  - SNEEZING [None]
  - ABDOMINAL DISCOMFORT [None]
  - CARDIOVERSION [None]
  - HYPOXIC-ISCHAEMIC ENCEPHALOPATHY [None]
  - HALLUCINATION, VISUAL [None]
  - VENTRICULAR FIBRILLATION [None]
  - BACK PAIN [None]
  - ELECTROCARDIOGRAM ABNORMAL [None]
  - GASTROENTERITIS [None]
  - HEADACHE [None]
  - JUGULAR VEIN DISTENSION [None]
  - POVERTY OF THOUGHT CONTENT [None]
  - SINUSITIS [None]
  - SUSPICIOUSNESS [None]
  - VENTRICULAR EXTRASYSTOLES [None]
  - HALLUCINATION, AUDITORY [None]
  - BUNDLE BRANCH BLOCK LEFT [None]
  - ECHOCARDIOGRAM ABNORMAL [None]
  - INTESTINAL POLYP [None]
  - LABORATORY TEST ABNORMAL [None]
  - RHINORRHOEA [None]
  - SINUS CONGESTION [None]
  - EMOTIONAL DISTRESS [None]
  - HYPOTHYROIDISM [None]
  - UNRESPONSIVE TO STIMULI [None]
  - CARDIOGENIC SHOCK [None]
  - TACHYCARDIA [None]
  - COUGH [None]
  - INJURY [None]
  - ECONOMIC PROBLEM [None]
  - CARDIOMYOPATHY [None]
  - PNEUMONIA [None]
  - SINUS ARRHYTHMIA [None]
  - SINUS TACHYCARDIA [None]
  - ANXIETY [None]
  - CARDIOACTIVE DRUG LEVEL INCREASED [None]
  - CONDUCTION DISORDER [None]
  - PALPITATIONS [None]
  - RESPIRATORY FAILURE [None]
  - PLEURAL EFFUSION [None]
  - ABDOMINAL DISTENSION [None]
  - ABDOMINAL PAIN [None]
  - AGITATION [None]
  - FLATULENCE [None]
  - MENTAL STATUS CHANGES [None]
  - RALES [None]
  - UPPER RESPIRATORY TRACT INFECTION [None]
  - VENOUS PRESSURE JUGULAR INCREASED [None]
  - ILL-DEFINED DISORDER [None]
  - ENDOTRACHEAL INTUBATION [None]
  - ACUTE MYOCARDIAL INFARCTION [None]
  - MITRAL VALVE INCOMPETENCE [None]
  - CARDIOMEGALY [None]
  - CONSTRICTED AFFECT [None]
  - DYSPNOEA [None]
  - FALL [None]
  - GENERAL PHYSICAL CONDITION ABNORMAL [None]
  - OEDEMA PERIPHERAL [None]
  - PHARYNGEAL ERYTHEMA [None]
